FAERS Safety Report 24411757 (Version 2)
Quarter: 2024Q4

REPORT INFORMATION
  Report Type: Spontaneous
  Country: SE (occurrence: SE)
  Receive Date: 20241008
  Receipt Date: 20241206
  Transmission Date: 20250114
  Serious: Yes (Life-Threatening, Hospitalization)
  Sender: TEVA
  Company Number: None

PATIENT
  Age: 71 Year
  Sex: Male

DRUGS (10)
  1. TICAGRELOR [Suspect]
     Active Substance: TICAGRELOR
     Indication: Dressler^s syndrome
     Dosage: TIKAGRELOR
     Route: 048
     Dates: start: 20240910, end: 20240911
  2. TICAGRELOR [Suspect]
     Active Substance: TICAGRELOR
     Indication: Dressler^s syndrome
     Dosage: LOADING DOSE 2 TABLETS, THEN 1 TABLET.
     Route: 048
     Dates: start: 20240910, end: 20240911
  3. METOPROLOL [Concomitant]
     Active Substance: METOPROLOL
     Indication: Product used for unknown indication
     Dosage: TIME INTERVAL: TOTAL
     Route: 065
     Dates: start: 20240910
  4. DIAZEPAM [Concomitant]
     Active Substance: DIAZEPAM
     Indication: Product used for unknown indication
     Dosage: TIME INTERVAL: TOTAL
     Route: 065
     Dates: start: 20240910
  5. ASPIRIN [Concomitant]
     Active Substance: ASPIRIN
     Indication: Product used for unknown indication
     Dosage: LOADING DOSE 4 TABLETS, THEN 1 TABLET
     Route: 065
     Dates: start: 20240909, end: 20240911
  6. ATORVASTATIN [Concomitant]
     Active Substance: ATORVASTATIN
     Indication: Product used for unknown indication
     Dates: start: 20240910
  7. OMEPRAZOLE [Concomitant]
     Active Substance: OMEPRAZOLE
     Indication: Gastric haemorrhage
     Route: 065
     Dates: start: 20221103
  8. OMEPRAZOLE [Concomitant]
     Active Substance: OMEPRAZOLE
     Indication: Gastric haemorrhage
     Route: 048
     Dates: start: 20240910
  9. CANDESARTAN [Concomitant]
     Active Substance: CANDESARTAN
     Indication: Product used for unknown indication
     Route: 065
     Dates: start: 20240911
  10. HEPARIN SODIUM [Concomitant]
     Active Substance: HEPARIN SODIUM
     Indication: Angiogram
     Dosage: TIME INTERVAL: TOTAL
     Route: 041
     Dates: start: 20240910, end: 20240910

REACTIONS (1)
  - Thrombocytopenia [Recovered/Resolved]

NARRATIVE: CASE EVENT DATE: 20240911
